FAERS Safety Report 10470663 (Version 2)
Quarter: 2014Q3

REPORT INFORMATION
  Report Type: Spontaneous
  Country: US (occurrence: US)
  Receive Date: 20140923
  Receipt Date: 20140923
  Transmission Date: 20150326
  Serious: Yes (Hospitalization)
  Sender: FDA-Public Use
  Company Number: US-GLAXOSMITHKLINE-A0812281A

PATIENT
  Sex: Male

DRUGS (1)
  1. AVANDIA [Suspect]
     Active Substance: ROSIGLITAZONE MALEATE
     Indication: TYPE 2 DIABETES MELLITUS
     Dosage: 4MG PER DAY
     Dates: start: 200406, end: 200603

REACTIONS (5)
  - Thalamic infarction [Unknown]
  - Cerebrovascular accident [Unknown]
  - Cerebral atrophy [Unknown]
  - Lacunar infarction [Unknown]
  - Cerebral infarction [Unknown]
